FAERS Safety Report 7528685-1 (Version None)
Quarter: 2011Q2

REPORT INFORMATION
  Report Type: 
  Country: None (occurrence: None)
  Receive Date: 20110518
  Receipt Date: 20100527
  Transmission Date: 20111010
  Serious: Yes (Other)
  Sender: FDA-Public Use
  Company Number: 1000014104

PATIENT
  Sex: Male

DRUGS (1)
  1. CERVIDIL [Suspect]
     Dosage: TRANSPLACENTAL
     Route: 064
     Dates: start: 20100524, end: 20100524

REACTIONS (1)
  - FOETAL HEART RATE DECELERATION [None]
